FAERS Safety Report 7538958-4 (Version None)
Quarter: 2011Q2

REPORT INFORMATION
  Report Type: 
  Country: None (occurrence: None)
  Receive Date: 20110610
  Receipt Date: 20101221
  Transmission Date: 20111010
  Serious: Yes (Other)
  Sender: FDA-Public Use
  Company Number: US-BAYER-200941436NA

PATIENT
  Age: 27 Year
  Sex: Female
  Weight: 133.79 kg

DRUGS (9)
  1. PROMETHAZINE [Concomitant]
     Dosage: 25 MG, UNK
  2. NORVASC [Concomitant]
     Dosage: 5 MG, QD
     Route: 048
     Dates: start: 20080702
  3. METFORMIN HYDROCHLORIDE [Concomitant]
     Dosage: 500 MG, UNK
  4. NSAID'S [Concomitant]
     Dosage: UNK UNK, PRN
     Dates: start: 19900101
  5. YAZ [Suspect]
     Indication: ACNE
     Dosage: UNK
     Dates: start: 20081001, end: 20090601
  6. MULTIVITAMIN PREPARATION + MINERAL SUPPLEMENT [Concomitant]
  7. ADVIL LIQUI-GELS [Concomitant]
     Dosage: UNK
     Dates: start: 19900101
  8. YAZ [Suspect]
     Indication: PREMENSTRUAL SYNDROME
  9. VICODIN [Concomitant]

REACTIONS (6)
  - CHOLECYSTITIS CHRONIC [None]
  - NAUSEA [None]
  - CHOLESTEROSIS [None]
  - VOMITING [None]
  - PAIN [None]
  - DIARRHOEA [None]
